FAERS Safety Report 23342463 (Version 1)
Quarter: 2023Q4

REPORT INFORMATION
  Report Type: Spontaneous
  Country: AR (occurrence: AR)
  Receive Date: 20231227
  Receipt Date: 20231227
  Transmission Date: 20240110
  Serious: Yes (Hospitalization, Other)
  Sender: FDA-Public Use
  Company Number: AR-009507513-2312ARG008975

PATIENT
  Age: 15 Year
  Sex: Male

DRUGS (5)
  1. POSACONAZOLE [Suspect]
     Active Substance: POSACONAZOLE
     Indication: Pulmonary mucormycosis
     Dosage: 300 MILLIGRAM, 24 HOURS BY 1 DAY
     Route: 048
     Dates: start: 20231107
  2. POSACONAZOLE [Suspect]
     Active Substance: POSACONAZOLE
     Dosage: 3 TABLET PER DAY; 300 MG A DAY
     Route: 048
     Dates: start: 20231108
  3. AMPHOTERICIN B [Suspect]
     Active Substance: AMPHOTERICIN B
     Indication: Pulmonary mucormycosis
     Dosage: 10 (UNITS NOT PROVIDED) X KILOGRAM
     Dates: start: 20231103
  4. AMPHOTERICIN B [Suspect]
     Active Substance: AMPHOTERICIN B
     Dosage: 10 (UNITS NOT PROVIDED) X KILOGRAM
     Dates: start: 20231107
  5. MEROPENEM [Suspect]
     Active Substance: MEROPENEM
     Indication: Pulmonary mucormycosis
     Dates: start: 20231103

REACTIONS (5)
  - Intensive care [Not Recovered/Not Resolved]
  - Thrombocytopenia [Unknown]
  - Splenomegaly [Unknown]
  - Product use issue [Unknown]
  - Product use in unapproved indication [Unknown]

NARRATIVE: CASE EVENT DATE: 20230101
